FAERS Safety Report 9688285 (Version 3)
Quarter: 2013Q4

REPORT INFORMATION
  Report Type: Report from Study
  Country: KR (occurrence: KR)
  Receive Date: 20131114
  Receipt Date: 20131126
  Transmission Date: 20140711
  Serious: Yes (Death, Hospitalization)
  Sender: FDA-Public Use
  Company Number: KR-BAYER-2012-135383

PATIENT
  Age: 47 Year
  Sex: Male

DRUGS (9)
  1. NEXAVAR [Suspect]
     Indication: HEPATOCELLULAR CARCINOMA
     Dosage: 800 MG, DAILY
     Route: 048
     Dates: start: 20111114, end: 20120112
  2. ANTIDIARRHOEAL MICROORGANISMS [Concomitant]
     Dosage: 3TAB, DAILY
     Dates: start: 20110729
  3. PENNEL [Concomitant]
     Indication: HEPATOCELLULAR CARCINOMA
     Dosage: 25 MG, DAILY
     Dates: start: 20110826
  4. GASMOTIN [Concomitant]
     Dosage: 15 MG, DAILY
     Dates: start: 20110705
  5. MONILAC [Concomitant]
     Indication: PROPHYLAXIS
     Dosage: 60 ML, DAILY
     Dates: start: 20110723
  6. ALBIS [Concomitant]
     Dosage: 2TAB, DAILY
     Dates: start: 20110729
  7. TRIDOL [Concomitant]
     Indication: HEPATOCELLULAR CARCINOMA
     Dosage: 300MG, DAILY
     Dates: start: 20110729
  8. LIVACT [AMINO ACIDS NOS] [Concomitant]
     Indication: HEPATOCELLULAR CARCINOMA
     Dosage: 4.15 G, DAILY
     Dates: start: 20110729
  9. FERROUS SULFATE [Concomitant]
     Dosage: 1TAB DAILY
     Dates: start: 20110826, end: 20111128

REACTIONS (2)
  - Hepatocellular carcinoma [Fatal]
  - Pleural effusion [Recovered/Resolved]
